FAERS Safety Report 5518487-X (Version None)
Quarter: 2007Q4

REPORT INFORMATION
  Report Type: 
  Country: None (occurrence: None)
  Receive Date: 20071115
  Receipt Date: 20071103
  Transmission Date: 20080405
  Serious: Yes (Other)
  Sender: FDA-Public Use
  Company Number: IN-PFIZER INC-2007075210

PATIENT
  Sex: Male

DRUGS (3)
  1. XALATAN [Suspect]
     Indication: OPEN ANGLE GLAUCOMA
     Dosage: TEXT:ONE DROP ONCE DAILY IN THE RIGHT EYE
     Route: 047
     Dates: start: 20070902, end: 20070910
  2. XALATAN [Suspect]
     Route: 061
  3. BETAXOLOL [Concomitant]

REACTIONS (1)
  - VERTIGO [None]
